FAERS Safety Report 11023369 (Version 2)
Quarter: 2015Q2

REPORT INFORMATION
  Report Type: Spontaneous
  Country: GB (occurrence: GB)
  Receive Date: 20150413
  Receipt Date: 20150507
  Transmission Date: 20150821
  Serious: Yes (Hospitalization)
  Sender: FDA-Public Use
  Company Number: PHFR2015GB002977

PATIENT
  Sex: Female

DRUGS (3)
  1. NEORAL [Suspect]
     Active Substance: CYCLOSPORINE
     Indication: PUSTULAR PSORIASIS
     Dosage: 175 MG, QD
     Route: 048
     Dates: start: 20150106
  2. NEORAL [Suspect]
     Active Substance: CYCLOSPORINE
     Dosage: 2.5 MG/KG,
     Route: 048
  3. NEORAL [Suspect]
     Active Substance: CYCLOSPORINE
     Dosage: 2 MG/KG,
     Route: 048

REACTIONS (4)
  - Influenza like illness [Unknown]
  - Seizure cluster [Unknown]
  - Generalised tonic-clonic seizure [Recovering/Resolving]
  - Pustular psoriasis [Unknown]
